FAERS Safety Report 10774221 (Version 1)
Quarter: 2015Q1

REPORT INFORMATION
  Report Type: Other
  Country: US (occurrence: US)
  Receive Date: 20150209
  Receipt Date: 20150209
  Transmission Date: 20150721
  Serious: Yes (Hospitalization)
  Sender: FDA-Public Use
  Company Number: US-ACORDA-ACO_35200_2013

PATIENT
  Age: 58 Year
  Sex: Male
  Weight: 61.22 kg

DRUGS (3)
  1. AMPYRA [Suspect]
     Active Substance: DALFAMPRIDINE
     Dosage: 10 MG, Q 12 HRS
     Route: 048
     Dates: start: 2013
  2. AMPYRA [Suspect]
     Active Substance: DALFAMPRIDINE
     Dosage: 10 MG, Q 12 HRS
     Route: 048
     Dates: start: 201204, end: 201303
  3. AMPYRA [Suspect]
     Active Substance: DALFAMPRIDINE
     Indication: FATIGUE MANAGEMENT
     Dosage: 10 MG, Q 12 HRS
     Route: 048
     Dates: start: 201003, end: 201203

REACTIONS (20)
  - Multiple sclerosis relapse [Recovered/Resolved]
  - Acute sinusitis [Unknown]
  - Multiple sclerosis [Not Recovered/Not Resolved]
  - Cystitis [Recovered/Resolved]
  - Multiple sclerosis relapse [Recovered/Resolved]
  - Hypotonia [Recovered/Resolved]
  - Asthenia [Not Recovered/Not Resolved]
  - Movement disorder [Recovered/Resolved]
  - Folliculitis [Unknown]
  - Pain [Not Recovered/Not Resolved]
  - Tooth infection [Recovered/Resolved]
  - Skin candida [Recovered/Resolved]
  - Therapeutic response unexpected [Unknown]
  - Malaise [Unknown]
  - Skin disorder [Recovered/Resolved]
  - Motor dysfunction [Recovered/Resolved]
  - Nail disorder [Not Recovered/Not Resolved]
  - Fatigue [Not Recovered/Not Resolved]
  - Rash [Recovered/Resolved]
  - Drug dose omission [Unknown]

NARRATIVE: CASE EVENT DATE: 201203
